FAERS Safety Report 5844974-0 (Version None)
Quarter: 2008Q3

REPORT INFORMATION
  Report Type: 
  Country: None (occurrence: None)
  Receive Date: 20080813
  Receipt Date: 20080813
  Transmission Date: 20090109
  Serious: Yes (Other)
  Sender: FDA-Public Use
  Company Number: None

PATIENT
  Age: 59 Year
  Sex: Female
  Weight: 112.4921 kg

DRUGS (1)
  1. COMPOUNDW MAXIMUM [Suspect]
     Indication: SKIN PAPILLOMA
     Dosage: ? 48 HRS TRANSDERMAL
     Route: 062
     Dates: start: 20080804, end: 20080810

REACTIONS (3)
  - ASTHENIA [None]
  - DYSPHAGIA [None]
  - SOMNOLENCE [None]
